FAERS Safety Report 6243508-9 (Version None)
Quarter: 2009Q2

REPORT INFORMATION
  Report Type: 
  Country: None (occurrence: None)
  Receive Date: 20090622
  Receipt Date: 20090610
  Transmission Date: 20091009
  Serious: Yes (Hospitalization)
  Sender: FDA-Public Use
  Company Number: 1000006870

PATIENT
  Age: 79 Year
  Sex: Female

DRUGS (8)
  1. NEBIVOLOL HCL [Suspect]
     Dosage: 5 MG (5 MG,1 IN 1 D),ORAL
     Route: 048
     Dates: start: 20090301, end: 20090401
  2. TEVETEN [Concomitant]
  3. LASIX [Concomitant]
  4. HYPERIUM [Concomitant]
  5. IKOREL [Concomitant]
  6. KARDEGIC [Concomitant]
  7. VASTAREL [Concomitant]
  8. ZANIDIP [Concomitant]

REACTIONS (9)
  - BRADYCARDIA [None]
  - HYPERHIDROSIS [None]
  - MALAISE [None]
  - PALLOR [None]
  - PRESYNCOPE [None]
  - SINUS ARRHYTHMIA [None]
  - SYSTOLIC HYPERTENSION [None]
  - TINNITUS [None]
  - VISION BLURRED [None]
